FAERS Safety Report 23852916 (Version 1)
Quarter: 2024Q2

REPORT INFORMATION
  Report Type: Spontaneous
  Country: PL (occurrence: None)
  Receive Date: 20240514
  Receipt Date: 20240514
  Transmission Date: 20240716
  Serious: Yes (Death, Life-Threatening, Hospitalization, Other)
  Sender: FDA-Public Use
  Company Number: PL-MLMSERVICE-20240502-PI047733-00218-3

PATIENT
  Age: 72 Year
  Sex: Male

DRUGS (1)
  1. METHOTREXATE [Suspect]
     Active Substance: METHOTREXATE
     Indication: Hypertension
     Dosage: GIVEN THAT PACKAGE CONTAINED 76 TABLETS, 24 WERE CONSIDERED MISSING

REACTIONS (11)
  - Accidental overdose [Fatal]
  - Product dispensing error [Fatal]
  - Unintentional use for unapproved indication [Fatal]
  - Inappropriate schedule of product administration [Fatal]
  - Wrong product administered [Fatal]
  - Hepatic failure [Fatal]
  - Renal failure [Fatal]
  - Toxicity to various agents [Fatal]
  - Bone marrow failure [Fatal]
  - Multiple organ dysfunction syndrome [Fatal]
  - Cardiac arrest [Fatal]
